FAERS Safety Report 20236701 (Version 1)
Quarter: 2021Q4

REPORT INFORMATION
  Report Type: Report from Study
  Country: AU (occurrence: AU)
  Receive Date: 20211228
  Receipt Date: 20211228
  Transmission Date: 20220303
  Serious: Yes (Hospitalization)
  Sender: FDA-Public Use
  Company Number: AU-MYLANLABS-2021M1037278

PATIENT
  Age: 9 Year
  Sex: Male
  Weight: 49.8 kg

DRUGS (43)
  1. METHOTREXATE [Suspect]
     Active Substance: METHOTREXATE
     Indication: Refractory cancer
     Dosage: UNK
     Route: 037
     Dates: start: 20210309, end: 20210309
  2. VENETOCLAX [Suspect]
     Active Substance: VENETOCLAX
     Indication: Refractory cancer
     Dosage: 200 MG (1 IN 1 DAY)
     Route: 048
     Dates: start: 20210302, end: 20210302
  3. VENETOCLAX [Suspect]
     Active Substance: VENETOCLAX
     Dosage: 400 MG (1 IN 1 DAY)
     Route: 048
     Dates: start: 20210303, end: 20210408
  4. VENETOCLAX [Suspect]
     Active Substance: VENETOCLAX
     Dosage: 400 MG (1 IN 1 DAY)
     Dates: start: 20210409, end: 20210504
  5. VENETOCLAX [Suspect]
     Active Substance: VENETOCLAX
     Dosage: 200 MG (1 IN 1 DAY)
     Dates: start: 20210505, end: 20210512
  6. VENETOCLAX [Suspect]
     Active Substance: VENETOCLAX
     Dosage: 400 MG (1 IN 1 DAY)
     Dates: start: 20210504
  7. PREDNISONE [Suspect]
     Active Substance: PREDNISONE
     Indication: Refractory cancer
     Dosage: 45 MILLIGRAM (15 MG 3 IN 1 DAY)
     Route: 048
     Dates: start: 20210306, end: 20210309
  8. PREDNISONE [Suspect]
     Active Substance: PREDNISONE
     Dosage: 22.5 MG (7.5 MG 3 IN 1 DAY)
     Route: 048
     Dates: start: 20210309, end: 20210312
  9. PREDNISONE [Suspect]
     Active Substance: PREDNISONE
     Dosage: 11.25 MG (3.75 MG, 3 IN 1 DAY)
     Route: 048
     Dates: start: 20210313, end: 20210315
  10. VINCRISTINE [Suspect]
     Active Substance: VINCRISTINE
     Indication: Refractory cancer
     Dosage: 2 MILLIGRAM
     Route: 042
     Dates: start: 20210305, end: 20210305
  11. PEGASPARGASE [Suspect]
     Active Substance: PEGASPARGASE
     Indication: Refractory cancer
     Dosage: 2500 IU/M2
     Route: 042
     Dates: start: 20210302, end: 20210302
  12. CYTARABINE [Suspect]
     Active Substance: CYTARABINE
     Indication: Refractory cancer
     Dosage: (75 MG/M2,1)
     Route: 042
     Dates: start: 20210406, end: 20210409
  13. CYTARABINE [Suspect]
     Active Substance: CYTARABINE
     Dosage: (75 MG/M2,1)
     Route: 042
     Dates: start: 20210317, end: 20210320
  14. CYTARABINE [Suspect]
     Active Substance: CYTARABINE
     Dosage: (75 MG/M2,1)
     Route: 042
     Dates: start: 20210413, end: 20210416
  15. CYTARABINE [Suspect]
     Active Substance: CYTARABINE
     Dosage: (75 MG/M2,1)
     Route: 042
     Dates: start: 20210504
  16. MERCAPTOPURINE [Suspect]
     Active Substance: MERCAPTOPURINE
     Indication: Refractory cancer
     Dosage: 60 MG/M2,1 IN 1 DAY
     Route: 048
     Dates: start: 20210317, end: 20210321
  17. MERCAPTOPURINE [Suspect]
     Active Substance: MERCAPTOPURINE
     Dosage: 60 MG/M2,1 IN 1 DAY
     Route: 048
     Dates: start: 20210406, end: 20210419
  18. MERCAPTOPURINE [Suspect]
     Active Substance: MERCAPTOPURINE
     Dosage: 60 MG/M2,1 IN 1 DAY
     Route: 048
     Dates: start: 20210504
  19. CYCLOPHOSPHAMIDE [Suspect]
     Active Substance: CYCLOPHOSPHAMIDE
     Indication: Refractory cancer
     Dosage: 1000 MG/M2, 1 IN 2 WEEK
     Route: 042
     Dates: start: 20210413, end: 20210413
  20. CYCLOPHOSPHAMIDE [Suspect]
     Active Substance: CYCLOPHOSPHAMIDE
     Dosage: 1000 MG/M2
     Route: 042
     Dates: start: 20210511, end: 20210511
  21. ONDANSETRON [Concomitant]
     Active Substance: ONDANSETRON
     Indication: Nausea
     Dosage: 7 MILLIGRAM, PRN, PRN (7MG)
     Route: 042
     Dates: start: 20210312
  22. ONDANSETRON [Concomitant]
     Active Substance: ONDANSETRON
     Indication: Vomiting
     Dosage: UNK
     Dates: start: 20210312
  23. ONDANSETRON [Concomitant]
     Active Substance: ONDANSETRON
     Dosage: UNK
     Route: 042
  24. ONDANSETRON [Concomitant]
     Active Substance: ONDANSETRON
     Dosage: UNK
     Route: 048
  25. ONDANSETRON [Concomitant]
     Active Substance: ONDANSETRON
     Dosage: 7 MILLIGRAM, PRN, PRN (7MG)
     Route: 048
     Dates: start: 20210205
  26. ACETAMINOPHEN [Concomitant]
     Active Substance: ACETAMINOPHEN
     Indication: Pain in jaw
     Dosage: 750-790 MG (AS REQUIRED)
     Route: 048
     Dates: start: 20210210
  27. ACETAMINOPHEN [Concomitant]
     Active Substance: ACETAMINOPHEN
     Indication: Pain in extremity
  28. ACETAMINOPHEN [Concomitant]
     Active Substance: ACETAMINOPHEN
     Indication: Back pain
  29. ACETAMINOPHEN [Concomitant]
     Active Substance: ACETAMINOPHEN
     Indication: Pyrexia
  30. Osmolax [Concomitant]
     Indication: Constipation
     Dosage: 17 MILLIGRAM, QD
     Route: 048
     Dates: start: 20210221
  31. Osmolax [Concomitant]
     Dosage: 5 MILLILITER
     Route: 048
     Dates: start: 20210305
  32. NYSTATIN [Concomitant]
     Active Substance: NYSTATIN
     Indication: Oral discomfort
     Dosage: 4 MILLILITER, Q4D
     Route: 048
     Dates: start: 20210302
  33. SODIUM BICARBONATE [Concomitant]
     Active Substance: SODIUM BICARBONATE
     Indication: Oral discomfort
     Dosage: 40 MILLILITER, Q4D
     Dates: start: 20210302
  34. OXYCODONE [Concomitant]
     Active Substance: OXYCODONE
     Indication: Pain in jaw
     Dosage: 5.3 MILLIGRAM, PRN
     Route: 048
     Dates: start: 20210210
  35. OXYCODONE [Concomitant]
     Active Substance: OXYCODONE
     Indication: Pain in extremity
  36. OXYCODONE [Concomitant]
     Active Substance: OXYCODONE
     Indication: Back pain
  37. BACTRIM [Concomitant]
     Active Substance: SULFAMETHOXAZOLE\TRIMETHOPRIM
     Indication: Pneumocystis jirovecii pneumonia
     Dosage: 800/160 MG; BD ON MON,WED,FRI
     Route: 048
     Dates: start: 20210312
  38. PIPERACILLIN SODIUM\TAZOBACTAM SODIUM [Concomitant]
     Active Substance: PIPERACILLIN SODIUM\TAZOBACTAM SODIUM
     Indication: Pyrexia
     Dosage: 4000 MG 4 IN 1 DAY
     Route: 042
     Dates: start: 20210309, end: 20210310
  39. PIPERACILLIN SODIUM\TAZOBACTAM SODIUM [Concomitant]
     Active Substance: PIPERACILLIN SODIUM\TAZOBACTAM SODIUM
     Indication: Infection
     Dosage: 4 MG 4 IN 1 DAY
     Route: 042
     Dates: start: 20210323, end: 20210323
  40. PIPERACILLIN SODIUM\TAZOBACTAM SODIUM [Concomitant]
     Active Substance: PIPERACILLIN SODIUM\TAZOBACTAM SODIUM
     Dosage: 4000 MG 3 IN 1 DAY
     Route: 042
     Dates: start: 20210430, end: 20210430
  41. PIPERACILLIN SODIUM\TAZOBACTAM SODIUM [Concomitant]
     Active Substance: PIPERACILLIN SODIUM\TAZOBACTAM SODIUM
     Dosage: 4000 MG 3 IN 1 DAY
     Route: 042
     Dates: start: 20210506
  42. DAUNORUBICIN [Concomitant]
     Active Substance: DAUNORUBICIN
     Dosage: 44 MILLIGRAM, QW
     Route: 042
     Dates: start: 20210305, end: 20210305
  43. FILGRASTIM [Concomitant]
     Active Substance: FILGRASTIM
     Indication: Neutropenia
     Dosage: 250 MICROGRAM, QD
     Route: 042
     Dates: start: 20210322

REACTIONS (4)
  - Febrile neutropenia [Recovered/Resolved]
  - Vascular device infection [Recovered/Resolved]
  - Decreased appetite [Recovered/Resolved]
  - Anaemia [Recovered/Resolved]

NARRATIVE: CASE EVENT DATE: 20210322
